FAERS Safety Report 7081259-1 (Version None)
Quarter: 2010Q4

REPORT INFORMATION
  Report Type: 
  Country: None (occurrence: None)
  Receive Date: 20101103
  Receipt Date: 20101021
  Transmission Date: 20110411
  Serious: Yes (Other)
  Sender: FDA-Public Use
  Company Number: US-WATSON-2010-14082

PATIENT

DRUGS (3)
  1. NORCO [Suspect]
     Dosage: UNK
  2. OXYCONTIN [Suspect]
     Dosage: UNK
  3. VICODIN [Suspect]
     Dosage: UNK

REACTIONS (1)
  - DRUG DIVERSION [None]
